FAERS Safety Report 18431457 (Version 1)
Quarter: 2020Q4

REPORT INFORMATION
  Report Type: Spontaneous
  Country: US (occurrence: US)
  Receive Date: 20201027
  Receipt Date: 20201027
  Transmission Date: 20210114
  Serious: Yes (Hospitalization)
  Sender: FDA-Public Use
  Company Number: None

PATIENT
  Age: 47 Year
  Sex: Female

DRUGS (8)
  1. DIFLUCAN [Concomitant]
     Active Substance: FLUCONAZOLE
  2. DEXAMETHASON [Concomitant]
     Active Substance: DEXAMETHASONE
  3. LEVOTHYROXIN [Concomitant]
     Active Substance: LEVOTHYROXINE
  4. OXYCODONE [Concomitant]
     Active Substance: OXYCODONE
  5. ALECENSA [Suspect]
     Active Substance: ALECTINIB HYDROCHLORIDE
     Route: 048
     Dates: start: 20200430
  6. MEMANTINE. [Concomitant]
     Active Substance: MEMANTINE
  7. HYDROCHLOROT [Concomitant]
     Active Substance: HYDROCHLOROTHIAZIDE
  8. OXYCONTIN [Concomitant]
     Active Substance: OXYCODONE HYDROCHLORIDE

REACTIONS (2)
  - Cardiovascular symptom [None]
  - Pneumonia [None]

NARRATIVE: CASE EVENT DATE: 20200920
